FAERS Safety Report 6842758-8 (Version None)
Quarter: 2010Q3

REPORT INFORMATION
  Report Type: 
  Country: None (occurrence: None)
  Receive Date: 20100714
  Receipt Date: 20070804
  Transmission Date: 20110219
  Serious: No
  Sender: FDA-Public Use
  Company Number: US-PFIZER INC-2007066122

PATIENT
  Sex: Female
  Weight: 93.2 kg

DRUGS (5)
  1. CHANTIX [Suspect]
     Indication: SMOKING CESSATION THERAPY
     Dates: start: 20070804
  2. METHADONE HCL [Concomitant]
  3. XANAX [Concomitant]
  4. TRAZODONE HYDROCHLORIDE [Concomitant]
  5. NEXIUM [Concomitant]
     Indication: GASTROOESOPHAGEAL REFLUX DISEASE

REACTIONS (1)
  - GASTROOESOPHAGEAL REFLUX DISEASE [None]
